FAERS Safety Report 7321646-7 (Version None)
Quarter: 2011Q1

REPORT INFORMATION
  Report Type: 
  Country: None (occurrence: None)
  Receive Date: 20110228
  Receipt Date: 20101031
  Transmission Date: 20110831
  Serious: No
  Sender: FDA-Public Use
  Company Number: A0891025A

PATIENT
  Sex: Male

DRUGS (1)
  1. VALTREX [Suspect]
     Dosage: 1G PER DAY

REACTIONS (3)
  - HEADACHE [None]
  - DRUG ADMINISTRATION ERROR [None]
  - ASTHENIA [None]
